FAERS Safety Report 9119945 (Version 1)
Quarter: 2013Q1

REPORT INFORMATION
  Report Type: Spontaneous
  Country: US (occurrence: US)
  Receive Date: 20130226
  Receipt Date: 20130226
  Transmission Date: 20140127
  Serious: Yes (Other)
  Sender: FDA-Public Use
  Company Number: US-BAYER-2013-021952

PATIENT
  Age: 52 Year
  Sex: Female
  Weight: 64.85 kg

DRUGS (1)
  1. ALKA-SELTZER PLUS NIGHT COLD MEDICINE [Suspect]
     Indication: NASOPHARYNGITIS
     Dosage: 2 DF, PRN
     Route: 048
     Dates: start: 2012

REACTIONS (4)
  - Ovarian cancer [Not Recovered/Not Resolved]
  - Cough [Recovered/Resolved]
  - Insomnia [Recovered/Resolved]
  - Expired drug administered [None]
